FAERS Safety Report 15720100 (Version 2)
Quarter: 2019Q1

REPORT INFORMATION
  Report Type: Spontaneous
  Country: FR (occurrence: FR)
  Receive Date: 20181213
  Receipt Date: 20190215
  Transmission Date: 20190417
  Serious: Yes (Other)
  Sender: FDA-Public Use
  Company Number: FR-009507513-1812FRA005183

PATIENT
  Age: 73 Year
  Sex: Male
  Weight: 63 kg

DRUGS (2)
  1. MEROPENEM. [Suspect]
     Active Substance: MEROPENEM
  2. THERAPY UNSPECIFIED [Suspect]
     Active Substance: UNSPECIFIED INGREDIENT
     Dosage: UNK

REACTIONS (3)
  - Drug hypersensitivity [Unknown]
  - Toxic encephalopathy [Unknown]
  - Hypersensitivity [Unknown]
